FAERS Safety Report 4922615-4 (Version None)
Quarter: 2006Q1

REPORT INFORMATION
  Report Type: 
  Country: None (occurrence: None)
  Receive Date: 20060223
  Receipt Date: 20060223
  Transmission Date: 20060701
  Serious: Yes (Hospitalization)
  Sender: FDA-Public Use
  Company Number: None

PATIENT
  Age: 60 Year
  Sex: Male
  Weight: 162.8413 kg

DRUGS (2)
  1. NAPROXEN [Suspect]
     Indication: OSTEOARTHRITIS
     Dosage: TWICE DAILY
  2. ASPIRIN [Suspect]
     Dosage: ONCE DAILY

REACTIONS (1)
  - GASTROINTESTINAL HAEMORRHAGE [None]
